FAERS Safety Report 4959304-6 (Version None)
Quarter: 2006Q1

REPORT INFORMATION
  Report Type: 
  Country: None (occurrence: None)
  Receive Date: 20060331
  Receipt Date: 20060320
  Transmission Date: 20060701
  Serious: Yes (Hospitalization)
  Sender: FDA-Public Use
  Company Number: DE-JNJFOC-20060305523

PATIENT
  Age: 85 Year
  Sex: Female

DRUGS (25)
  1. HALDOL [Suspect]
     Route: 048
  2. HALDOL [Suspect]
     Route: 048
  3. HALDOL [Suspect]
     Route: 048
  4. HALDOL [Suspect]
     Indication: DRUG USE FOR UNKNOWN INDICATION
     Route: 048
  5. MELNEURIN [Suspect]
     Route: 048
  6. MELNEURIN [Suspect]
     Route: 048
  7. MELNEURIN [Suspect]
     Indication: DRUG USE FOR UNKNOWN INDICATION
     Route: 048
  8. CONCOR [Concomitant]
     Route: 048
  9. ENAHEXAL [Concomitant]
     Route: 048
  10. DECORTIN [Concomitant]
     Route: 048
  11. DECORTIN [Concomitant]
     Route: 048
  12. DECORTIN [Concomitant]
     Route: 048
  13. DECORTIN [Concomitant]
     Route: 048
  14. DECORTIN [Concomitant]
     Route: 048
  15. DECORTIN [Concomitant]
     Route: 048
  16. DECORTIN [Concomitant]
     Dosage: 40 - 25 MG
     Route: 048
  17. NORVASC [Concomitant]
     Route: 048
  18. BERODUAL [Concomitant]
     Route: 048
  19. BERODUAL [Concomitant]
     Dosage: DOSE = HUB
     Route: 048
  20. PULMICORT [Concomitant]
     Dosage: DOSE = HUB
     Route: 048
  21. TAVOR [Concomitant]
     Dosage: 0.5 - 2.5 MG
     Route: 048
  22. HCT HEXAL [Concomitant]
     Route: 048
  23. ISOPTIN [Concomitant]
     Route: 048
  24. DIPIPERON [Concomitant]
     Route: 048
  25. DIPIPERON [Concomitant]
     Route: 048

REACTIONS (7)
  - BALANCE DISORDER [None]
  - COGNITIVE DETERIORATION [None]
  - COR PULMONALE [None]
  - DRUG INEFFECTIVE [None]
  - OEDEMA PERIPHERAL [None]
  - ORAL INTAKE REDUCED [None]
  - URINARY INCONTINENCE [None]
